FAERS Safety Report 4482217-3 (Version None)
Quarter: 2004Q4

REPORT INFORMATION
  Report Type: 
  Country: None (occurrence: None)
  Receive Date: 20041020
  Receipt Date: 20041006
  Transmission Date: 20050328
  Serious: Yes (Other)
  Sender: FDA-Public Use
  Company Number: US_990827125

PATIENT
  Age: 68 Year
  Sex: Female
  Weight: 55 kg

DRUGS (2)
  1. EVISTA [Suspect]
     Indication: OSTEOPOROSIS
     Dosage: 60 MG/1 DAY
     Dates: start: 19980101, end: 20020101
  2. FOSAMAX [Concomitant]

REACTIONS (8)
  - BONE DENSITY DECREASED [None]
  - CHEST PAIN [None]
  - DRUG INEFFECTIVE [None]
  - DYSPNOEA [None]
  - MUSCLE CRAMP [None]
  - PAIN IN EXTREMITY [None]
  - STOMACH DISCOMFORT [None]
  - WEIGHT INCREASED [None]
